FAERS Safety Report 9658571 (Version 2)
Quarter: 2013Q4

REPORT INFORMATION
  Report Type: Spontaneous
  Country: US (occurrence: US)
  Receive Date: 20131030
  Receipt Date: 20131030
  Transmission Date: 20140711
  Serious: No
  Sender: FDA-Public Use
  Company Number: US-PURDUE-USA-2010-0048713

PATIENT
  Age: 47 Year
  Sex: Female
  Weight: 90.7 kg

DRUGS (1)
  1. OXYCONTIN (NDA 22-272) [Suspect]
     Indication: PAIN
     Dosage: 160 MG, QID

REACTIONS (3)
  - Medication residue present [Not Recovered/Not Resolved]
  - Foreign body [Not Recovered/Not Resolved]
  - Abdominal pain upper [Not Recovered/Not Resolved]
